FAERS Safety Report 8546224-3 (Version None)
Quarter: 2012Q3

REPORT INFORMATION
  Report Type: 
  Country: None (occurrence: None)
  Receive Date: 20120727
  Receipt Date: 20120712
  Transmission Date: 20120928
  Serious: Yes (Death)
  Sender: FDA-Public Use
  Company Number: FR-ARROW-2012-12677

PATIENT
  Age: 85 Year
  Sex: Female

DRUGS (2)
  1. RITUXIMAB [Suspect]
     Indication: RHEUMATOID VASCULITIS
     Dosage: 1 GM WEEKLY
     Route: 042
  2. PREDNISONE [Suspect]
     Indication: RHEUMATOID VASCULITIS
     Dosage: 5 MG, DAILY
     Route: 048

REACTIONS (4)
  - OCULAR ISCHAEMIC SYNDROME [None]
  - EXTREMITY NECROSIS [None]
  - SEPSIS [None]
  - GANGRENE [None]
